FAERS Safety Report 23992380 (Version 1)
Quarter: 2024Q2

REPORT INFORMATION
  Report Type: Spontaneous
  Country: US (occurrence: US)
  Receive Date: 20240620
  Receipt Date: 20240620
  Transmission Date: 20240715
  Serious: No
  Sender: FDA-Public Use
  Company Number: US-TEVA-VS-3209029

PATIENT
  Sex: Female

DRUGS (7)
  1. ADDERALL [Suspect]
     Active Substance: AMPHETAMINE ASPARTATE\AMPHETAMINE SULFATE\DEXTROAMPHETAMINE SACCHARATE\DEXTROAMPHETAMINE SULFATE
     Indication: Product used for unknown indication
     Route: 065
  2. XYREM [Suspect]
     Active Substance: SODIUM OXYBATE
     Indication: Narcolepsy
     Route: 048
     Dates: start: 201111, end: 201611
  3. GLICLAZIDE [Concomitant]
     Active Substance: GLICLAZIDE
  4. MODAFINIL [Concomitant]
     Active Substance: MODAFINIL
  5. ZYRTEC [Concomitant]
     Active Substance: CETIRIZINE HYDROCHLORIDE
  6. NAPROXEN [Concomitant]
     Active Substance: NAPROXEN
  7. OZEMPIC [Concomitant]
     Active Substance: SEMAGLUTIDE

REACTIONS (5)
  - Palpitations [Unknown]
  - Hypertension [Unknown]
  - Heart rate increased [Not Recovered/Not Resolved]
  - Feeling jittery [Not Recovered/Not Resolved]
  - Rapid eye movement sleep behaviour disorder [Unknown]
